FAERS Safety Report 9144083 (Version 1)
Quarter: 2013Q1

REPORT INFORMATION
  Report Type: Spontaneous
  Country: CA (occurrence: CA)
  Receive Date: 20130306
  Receipt Date: 20130306
  Transmission Date: 20140127
  Serious: Yes (Hospitalization, Other)
  Sender: FDA-Public Use
  Company Number: CA-ELI_LILLY_AND_COMPANY-CA201302009947

PATIENT
  Sex: Male

DRUGS (2)
  1. HUMULIN NPH [Suspect]
  2. HUMALOG LISPRO [Suspect]

REACTIONS (2)
  - Myocardial infarction [Unknown]
  - Malaise [Unknown]
